FAERS Safety Report 20676999 (Version 1)
Quarter: 2022Q2

REPORT INFORMATION
  Report Type: Spontaneous
  Country: US (occurrence: None)
  Receive Date: 20220406
  Receipt Date: 20220406
  Transmission Date: 20220721
  Serious: No
  Sender: FDA-Public Use
  Company Number: US-EyePoint Pharmaceuticals, Inc.-US-EYP-21-00044

PATIENT
  Age: 67 Year
  Sex: Female

DRUGS (1)
  1. DEXYCU [Suspect]
     Active Substance: DEXAMETHASONE
     Indication: Product used for unknown indication
     Route: 031
     Dates: start: 20210408, end: 20210408

REACTIONS (3)
  - Complication of device insertion [Unknown]
  - Implantation complication [Unknown]
  - No adverse event [Unknown]

NARRATIVE: CASE EVENT DATE: 20210408
